FAERS Safety Report 5748440-2 (Version None)
Quarter: 2008Q2

REPORT INFORMATION
  Report Type: 
  Country: None (occurrence: None)
  Receive Date: 20080523
  Receipt Date: 20080514
  Transmission Date: 20081010
  Serious: Yes (Hospitalization, Disabling, Other)
  Sender: FDA-Public Use
  Company Number: JP-PFIZER INC-2008041014

PATIENT
  Sex: Male

DRUGS (13)
  1. GABAPEN [Suspect]
     Indication: EPILEPSY
     Dosage: DAILY DOSE:1200MG
     Route: 048
     Dates: start: 20080423, end: 20080501
  2. TEGRETOL [Suspect]
     Indication: EPILEPSY
     Route: 048
  3. TRYPTANOL [Suspect]
     Indication: HEADACHE
     Route: 048
     Dates: start: 20080418
  4. ALEVIATIN [Suspect]
     Indication: EPILEPSY
     Route: 042
     Dates: start: 20080413, end: 20080417
  5. LENDORMIN [Concomitant]
     Route: 048
  6. LOXONIN [Concomitant]
     Route: 048
  7. RINLAXER [Concomitant]
     Route: 048
     Dates: start: 20080414, end: 20080423
  8. DEPAS [Concomitant]
     Route: 048
     Dates: start: 20080414, end: 20080423
  9. CALONAL [Concomitant]
     Route: 048
     Dates: start: 20080414, end: 20080509
  10. VOLTAREN [Concomitant]
     Dates: start: 20080416
  11. ZOLMITRIPTAN [Concomitant]
     Route: 048
     Dates: start: 20080418, end: 20080420
  12. NAUZELIN [Concomitant]
     Dates: start: 20080418, end: 20080420
  13. HORIZON [Concomitant]
     Route: 042
     Dates: start: 20080421, end: 20080421

REACTIONS (10)
  - DIZZINESS [None]
  - HEADACHE [None]
  - HYPOAESTHESIA [None]
  - INTRACRANIAL PRESSURE INCREASED [None]
  - LOSS OF CONSCIOUSNESS [None]
  - OPTIC DISC DISORDER [None]
  - OPTIC NERVE DISORDER [None]
  - TINNITUS [None]
  - VISION BLURRED [None]
  - VISUAL DISTURBANCE [None]
